FAERS Safety Report 25934965 (Version 1)
Quarter: 2025Q4

REPORT INFORMATION
  Report Type: Spontaneous
  Country: EU (occurrence: EU)
  Receive Date: 20251017
  Receipt Date: 20251017
  Transmission Date: 20260118
  Serious: Yes (Other)
  Sender: MYLAN
  Company Number: None

PATIENT
  Age: 84 Year
  Sex: Female

DRUGS (36)
  1. MIRTAZAPINE [Suspect]
     Active Substance: MIRTAZAPINE
     Indication: Product used for unknown indication
     Dosage: 15 MILLIGRAM
     Dates: start: 20250809, end: 20250809
  2. MIRTAZAPINE [Suspect]
     Active Substance: MIRTAZAPINE
     Dosage: 15 MILLIGRAM
     Route: 048
     Dates: start: 20250809, end: 20250809
  3. MIRTAZAPINE [Suspect]
     Active Substance: MIRTAZAPINE
     Dosage: 15 MILLIGRAM
     Route: 048
     Dates: start: 20250809, end: 20250809
  4. MIRTAZAPINE [Suspect]
     Active Substance: MIRTAZAPINE
     Dosage: 15 MILLIGRAM
     Dates: start: 20250809, end: 20250809
  5. TAMSULOSIN [Suspect]
     Active Substance: TAMSULOSIN
     Indication: Product used for unknown indication
     Dosage: 0.4 MILLIGRAM
     Dates: start: 20250809, end: 20250809
  6. TAMSULOSIN [Suspect]
     Active Substance: TAMSULOSIN
     Dosage: 0.4 MILLIGRAM
     Route: 048
     Dates: start: 20250809, end: 20250809
  7. TAMSULOSIN [Suspect]
     Active Substance: TAMSULOSIN
     Dosage: 0.4 MILLIGRAM
     Route: 048
     Dates: start: 20250809, end: 20250809
  8. TAMSULOSIN [Suspect]
     Active Substance: TAMSULOSIN
     Dosage: 0.4 MILLIGRAM
     Dates: start: 20250809, end: 20250809
  9. GABAPENTIN [Suspect]
     Active Substance: GABAPENTIN
     Indication: Product used for unknown indication
     Dosage: 100 MILLIGRAM
     Dates: start: 20250809, end: 20250809
  10. GABAPENTIN [Suspect]
     Active Substance: GABAPENTIN
     Dosage: 100 MILLIGRAM
     Route: 048
     Dates: start: 20250809, end: 20250809
  11. GABAPENTIN [Suspect]
     Active Substance: GABAPENTIN
     Dosage: 100 MILLIGRAM
     Route: 048
     Dates: start: 20250809, end: 20250809
  12. GABAPENTIN [Suspect]
     Active Substance: GABAPENTIN
     Dosage: 100 MILLIGRAM
     Dates: start: 20250809, end: 20250809
  13. MELATONIN [Suspect]
     Active Substance: MELATONIN
     Indication: Product used for unknown indication
     Dosage: 2 MILLIGRAM
     Dates: start: 20250809, end: 20250809
  14. MELATONIN [Suspect]
     Active Substance: MELATONIN
     Dosage: 2 MILLIGRAM
     Route: 048
     Dates: start: 20250809, end: 20250809
  15. MELATONIN [Suspect]
     Active Substance: MELATONIN
     Dosage: 2 MILLIGRAM
     Route: 048
     Dates: start: 20250809, end: 20250809
  16. MELATONIN [Suspect]
     Active Substance: MELATONIN
     Dosage: 2 MILLIGRAM
     Dates: start: 20250809, end: 20250809
  17. CLOPIDOGREL [4]
     Active Substance: CLOPIDOGREL BISULFATE
     Indication: Product used for unknown indication
     Dosage: UNK
  18. CLOPIDOGREL [4]
     Active Substance: CLOPIDOGREL BISULFATE
     Dosage: UNK
     Route: 065
  19. CLOPIDOGREL [4]
     Active Substance: CLOPIDOGREL BISULFATE
     Dosage: UNK
     Route: 065
  20. CLOPIDOGREL [4]
     Active Substance: CLOPIDOGREL BISULFATE
     Dosage: UNK
  21. ZOPICLONE [4]
     Active Substance: ZOPICLONE
     Indication: Product used for unknown indication
     Dosage: UNK
  22. ZOPICLONE [4]
     Active Substance: ZOPICLONE
     Dosage: UNK
     Route: 065
  23. ZOPICLONE [4]
     Active Substance: ZOPICLONE
     Dosage: UNK
     Route: 065
  24. ZOPICLONE [4]
     Active Substance: ZOPICLONE
     Dosage: UNK
  25. LANSOPRAZOLE [4]
     Active Substance: LANSOPRAZOLE
     Indication: Product used for unknown indication
     Dosage: UNK
  26. LANSOPRAZOLE [4]
     Active Substance: LANSOPRAZOLE
     Dosage: UNK
     Route: 065
  27. LANSOPRAZOLE [4]
     Active Substance: LANSOPRAZOLE
     Dosage: UNK
     Route: 065
  28. LANSOPRAZOLE [4]
     Active Substance: LANSOPRAZOLE
     Dosage: UNK
  29. RISPERDAL [4]
     Active Substance: RISPERIDONE
     Indication: Product used for unknown indication
     Dosage: UNK
  30. RISPERDAL [4]
     Active Substance: RISPERIDONE
     Dosage: UNK
     Route: 065
  31. RISPERDAL [4]
     Active Substance: RISPERIDONE
     Dosage: UNK
     Route: 065
  32. RISPERDAL [4]
     Active Substance: RISPERIDONE
     Dosage: UNK
  33. POTASSIUM CHLORIDE [Concomitant]
     Active Substance: POTASSIUM CHLORIDE
     Indication: Product used for unknown indication
     Dosage: 3 DOSAGE FORM
     Dates: start: 20250809, end: 20250809
  34. POTASSIUM CHLORIDE [Concomitant]
     Active Substance: POTASSIUM CHLORIDE
     Dosage: 3 DOSAGE FORM
     Route: 048
     Dates: start: 20250809, end: 20250809
  35. POTASSIUM CHLORIDE [Concomitant]
     Active Substance: POTASSIUM CHLORIDE
     Dosage: 3 DOSAGE FORM
     Route: 048
     Dates: start: 20250809, end: 20250809
  36. POTASSIUM CHLORIDE [Concomitant]
     Active Substance: POTASSIUM CHLORIDE
     Dosage: 3 DOSAGE FORM
     Dates: start: 20250809, end: 20250809

REACTIONS (2)
  - Depressed level of consciousness [Recovered/Resolved]
  - Wrong product administered [Recovered/Resolved]

NARRATIVE: CASE EVENT DATE: 20250809
